FAERS Safety Report 25363905 (Version 1)
Quarter: 2025Q2

REPORT INFORMATION
  Report Type: Spontaneous
  Country: CN (occurrence: CN)
  Receive Date: 20250527
  Receipt Date: 20250527
  Transmission Date: 20250717
  Serious: Yes (Hospitalization)
  Sender: FRESENIUS KABI
  Company Number: CN-FreseniusKabi-FK202507311

PATIENT
  Age: 67 Year
  Sex: Female
  Weight: 60 kg

DRUGS (7)
  1. DEXTROSE [Suspect]
     Active Substance: DEXTROSE MONOHYDRATE
     Indication: Impaired gastric emptying
     Dosage: FOA: INJECTION
     Route: 041
     Dates: start: 20250510, end: 20250512
  2. GLYCERIN\MEDIUM-CHAIN TRIGLYCERIDES\PHOSPHOLIPID\SOYBEAN OIL [Suspect]
     Active Substance: GLYCERIN\MEDIUM-CHAIN TRIGLYCERIDES\PHOSPHOLIPID\SOYBEAN OIL
     Indication: Impaired gastric emptying
     Dosage: FOA: INJECTION
     Route: 041
     Dates: start: 20250510, end: 20250512
  3. INSULIN PORK\INSULIN PURIFIED PORK [Suspect]
     Active Substance: INSULIN PORK\INSULIN PURIFIED PORK
     Indication: Impaired gastric emptying
     Dosage: FOA: INJECTION
     Route: 041
     Dates: start: 20250510, end: 20250512
  4. AMINO ACIDS INJECTION [Suspect]
     Active Substance: ALANINE\ARGININE\ASPARTIC ACID\GLUTAMIC ACID\GLYCINE\HISTIDINE\ISOLEUCINE\LEUCINE\LYSINE ACETATE\MET
     Indication: Impaired gastric emptying
     Dosage: FOA: INJECTION
     Route: 041
     Dates: start: 20250503, end: 20250508
  5. POTASSIUM CHLORIDE [Suspect]
     Active Substance: POTASSIUM CHLORIDE
     Indication: Impaired gastric emptying
     Dosage: FOA: INJECTION
     Route: 041
     Dates: start: 20250510, end: 20250512
  6. VITAMINS [Suspect]
     Active Substance: VITAMINS
     Indication: Impaired gastric emptying
     Dosage: FOA: LYOPHILIZED POWDER
     Route: 041
     Dates: start: 20250510, end: 20250512
  7. DEXTROSE [Suspect]
     Active Substance: DEXTROSE MONOHYDRATE
     Indication: Impaired gastric emptying
     Dosage: FOA: INJECTION
     Route: 041
     Dates: start: 20250510, end: 20250512

REACTIONS (1)
  - Hyperbilirubinaemia [Recovering/Resolving]

NARRATIVE: CASE EVENT DATE: 20250516
